FAERS Safety Report 25945116 (Version 1)
Quarter: 2025Q4

REPORT INFORMATION
  Report Type: Spontaneous
  Country: CA (occurrence: CA)
  Receive Date: 20251021
  Receipt Date: 20251021
  Transmission Date: 20260118
  Serious: Yes (Hospitalization)
  Sender: BRISTOL-MYERS SQUIBB COMPANY
  Company Number: CA-BRISTOL-MYERS SQUIBB COMPANY-2025-142911

PATIENT
  Age: 73 Year
  Sex: Female

DRUGS (1)
  1. THALIDOMIDE [Suspect]
     Active Substance: THALIDOMIDE
     Indication: Angiodysplasia
     Dosage: FREQUENCY: 42C/28D
     Dates: start: 20250924, end: 20251017

REACTIONS (2)
  - Haemorrhage [Unknown]
  - Off label use [Unknown]
